FAERS Safety Report 7624121-5 (Version None)
Quarter: 2011Q3

REPORT INFORMATION
  Report Type: 
  Country: None (occurrence: None)
  Receive Date: 20110719
  Receipt Date: 20110719
  Transmission Date: 20111222
  Serious: Yes (Hospitalization)
  Sender: FDA-Public Use
  Company Number: None

PATIENT
  Sex: Male
  Weight: 69.7 kg

DRUGS (2)
  1. CARBOPLATIN [Suspect]
     Dosage: 540 MG
     Dates: end: 20101214
  2. PACLITAXEL [Suspect]
     Dosage: 374 MG
     Dates: end: 20101214

REACTIONS (1)
  - ATRIAL FIBRILLATION [None]
